FAERS Safety Report 15532597 (Version 2)
Quarter: 2019Q1

REPORT INFORMATION
  Report Type: Report from Study
  Country: US (occurrence: US)
  Receive Date: 20181019
  Receipt Date: 20190123
  Transmission Date: 20190417
  Serious: No
  Sender: FDA-Public Use
  Company Number: US-SA-2018SA286539

PATIENT
  Age: 59 Year
  Sex: Male

DRUGS (2)
  1. DUPILUMAB [Suspect]
     Active Substance: DUPILUMAB
     Indication: DERMATITIS ATOPIC
     Dosage: 600 MG, 1X
     Route: 058
     Dates: start: 20180402, end: 20180402
  2. DUPILUMAB [Suspect]
     Active Substance: DUPILUMAB
     Dosage: BOTH INJECTIONS, EVERY 28 DAYS
     Route: 058
     Dates: start: 201805

REACTIONS (3)
  - Dry eye [Unknown]
  - Rash pruritic [Unknown]
  - Inappropriate schedule of product administration [Unknown]

NARRATIVE: CASE EVENT DATE: 20181008
